FAERS Safety Report 14427512 (Version 3)
Quarter: 2018Q1

REPORT INFORMATION
  Report Type: Spontaneous
  Country: US (occurrence: US)
  Receive Date: 20180123
  Receipt Date: 20180322
  Transmission Date: 20180509
  Serious: Yes (Death, Other)
  Sender: FDA-Public Use
  Company Number: US-IMPAX LABORATORIES, INC-2018-IPXL-00032

PATIENT
  Age: 78 Year
  Sex: Female

DRUGS (2)
  1. RYTARY [Suspect]
     Active Substance: CARBIDOPA\LEVODOPA
     Dosage: 36.25/145 MG, 1 CAPSULE THREE TIMES A DAY
     Route: 048
  2. RYTARY [Suspect]
     Active Substance: CARBIDOPA\LEVODOPA
     Indication: PARKINSON^S DISEASE
     Dosage: 36.25/145 MG, 4 CAPSULES THREE TIMES A DAY
     Route: 048

REACTIONS (5)
  - Disorientation [Unknown]
  - Parkinson^s disease [Fatal]
  - Delusion [Unknown]
  - Coma [Recovered/Resolved]
  - Hallucination, visual [Unknown]

NARRATIVE: CASE EVENT DATE: 20180226
